FAERS Safety Report 9832574 (Version 2)
Quarter: 2014Q1

REPORT INFORMATION
  Report Type: Spontaneous
  Country: US (occurrence: US)
  Receive Date: 20140121
  Receipt Date: 20140226
  Transmission Date: 20141002
  Serious: Yes (Other)
  Sender: FDA-Public Use
  Company Number: US-PFIZER INC-2014014382

PATIENT
  Sex: Male

DRUGS (1)
  1. FLECTOR [Suspect]
     Dosage: UNK

REACTIONS (1)
  - Parkinson^s disease [Unknown]
